FAERS Safety Report 23476225 (Version 1)
Quarter: 2024Q1

REPORT INFORMATION
  Report Type: Report from Study
  Country: US (occurrence: US)
  Receive Date: 20240204
  Receipt Date: 20240204
  Transmission Date: 20240410
  Serious: No
  Sender: FDA-Public Use
  Company Number: US-EXELIXIS-CABO-23062254

PATIENT
  Age: 63 Year
  Sex: Male

DRUGS (23)
  1. CABOMETYX [Suspect]
     Active Substance: CABOZANTINIB S-MALATE
     Indication: Renal cell carcinoma
     Dosage: 40 MG, QD
     Route: 048
     Dates: start: 20230310
  2. OPDIVO [Suspect]
     Active Substance: NIVOLUMAB
     Indication: Renal cell carcinoma
     Dosage: UNK, Q4WEEKS
     Dates: start: 20230310
  3. BENADRYL [Concomitant]
     Active Substance: DIPHENHYDRAMINE HYDROCHLORIDE
  4. BIOTENE NOS [Concomitant]
     Active Substance: CETYLPYRIDINIUM CHLORIDE OR SODIUM FLUORIDE OR SODIUM MONOFLUOROPHOSPHATE OR GLUCOSE OXIDASE\LACTOFE
  5. CALCIUM\CHOLECALCIFEROL [Concomitant]
     Active Substance: CALCIUM\CHOLECALCIFEROL
  6. CLONAZEPAM [Concomitant]
     Active Substance: CLONAZEPAM
  7. DOCUSATE CALCIUM [Concomitant]
     Active Substance: DOCUSATE CALCIUM
  8. FERROUS SULFATE [Concomitant]
     Active Substance: FERROUS SULFATE
  9. FLONASE [Concomitant]
     Active Substance: FLUTICASONE PROPIONATE
  10. GABAPENTIN [Concomitant]
     Active Substance: GABAPENTIN
  11. NORCO [Concomitant]
     Active Substance: ACETAMINOPHEN\HYDROCODONE BITARTRATE
  12. METOPROLOL TARTRATE [Concomitant]
     Active Substance: METOPROLOL TARTRATE
  13. MORPHINE [Concomitant]
     Active Substance: MORPHINE
  14. VITA FUSION MINT [Concomitant]
  15. OMEPRAZOLE [Concomitant]
     Active Substance: OMEPRAZOLE
  16. ONDANSETRON [Concomitant]
     Active Substance: ONDANSETRON
  17. PEPCID [Concomitant]
     Active Substance: FAMOTIDINE
  18. POTASSIUM CITRATE [Concomitant]
     Active Substance: POTASSIUM CITRATE
  19. PREDNISOLONE [Concomitant]
     Active Substance: PREDNISOLONE
  20. PREDNISONE [Concomitant]
     Active Substance: PREDNISONE
  21. PROAIR HFA [Concomitant]
     Active Substance: ALBUTEROL SULFATE
  22. PSYLLIUM FIBER [Concomitant]
  23. SENNA S [Concomitant]
     Active Substance: DOCUSATE SODIUM\SENNA LEAF

REACTIONS (5)
  - Weight increased [Unknown]
  - Oral pain [Unknown]
  - Rash macular [Unknown]
  - Muscle spasms [Unknown]
  - Renal function test abnormal [Unknown]

NARRATIVE: CASE EVENT DATE: 20230301
